FAERS Safety Report 5634164-9 (Version None)
Quarter: 2008Q1

REPORT INFORMATION
  Report Type: 
  Country: None (occurrence: None)
  Receive Date: 20080221
  Receipt Date: 20080221
  Transmission Date: 20080703
  Serious: Yes (Other)
  Sender: FDA-Public Use
  Company Number: None

PATIENT
  Sex: Male

DRUGS (17)
  1. AMLODIPINE [Suspect]
     Indication: HYPERTENSION
     Dosage: 5 MG 1 PO DAILY PO
     Route: 048
     Dates: start: 20070601, end: 20070701
  2. CLONIDINE [Concomitant]
  3. METOLAZINE [Concomitant]
  4. LASIX [Concomitant]
  5. HYDRALAZINE HCL [Concomitant]
  6. AVAPRO [Concomitant]
  7. NORVASC [Concomitant]
  8. LEVOTHYROXINE SODIUM [Concomitant]
  9. PAXIL CR [Concomitant]
  10. CENTRUM SILVER [Concomitant]
  11. MAGNESIUM [Concomitant]
  12. GLUCOSAMINE [Concomitant]
  13. METFORMIN HCL [Concomitant]
  14. AMARYL [Concomitant]
  15. POTASSIUM CHLORIDE [Concomitant]
  16. LOVAZA [Concomitant]
  17. VYTORIN [Concomitant]

REACTIONS (3)
  - DIZZINESS [None]
  - PHARMACEUTICAL PRODUCT COMPLAINT [None]
  - THERAPEUTIC RESPONSE UNEXPECTED WITH DRUG SUBSTITUTION [None]
